FAERS Safety Report 9156479 (Version 1)
Quarter: 2013Q1

REPORT INFORMATION
  Report Type: Spontaneous
  Country: US (occurrence: None)
  Receive Date: 20130308
  Receipt Date: 20130308
  Transmission Date: 20140127
  Serious: Yes (Other)
  Sender: FDA-Public Use
  Company Number: None

PATIENT
  Sex: Female
  Weight: 88.45 kg

DRUGS (2)
  1. LAMISIL [Suspect]
     Indication: ONYCHOMYCOSIS
     Dosage: 250 MG QD PO
     Route: 048
     Dates: start: 20121217, end: 20130219
  2. SPIRONOLACTONE [Suspect]
     Indication: ACNE
     Dosage: 25 MG 2 PO QAM PO
     Route: 048
     Dates: start: 20121217, end: 20130219

REACTIONS (2)
  - White blood cell count decreased [None]
  - Granulocytopenia [None]
